FAERS Safety Report 12390165 (Version 2)
Quarter: 2016Q4

REPORT INFORMATION
  Report Type: Spontaneous
  Country: SE (occurrence: SE)
  Receive Date: 20160520
  Receipt Date: 20161220
  Transmission Date: 20170207
  Serious: Yes (Hospitalization)
  Sender: FDA-Public Use
  Company Number: SE-MEDA-2016050061

PATIENT
  Age: 75 Year
  Sex: Male

DRUGS (1)
  1. PROMITEN [Suspect]
     Active Substance: DEXTRAN 1
     Dosage: 20 ML DURING 3 MINUTES
     Route: 042
     Dates: start: 20160218, end: 20160218

REACTIONS (1)
  - Anaphylactic reaction [Recovered/Resolved]

NARRATIVE: CASE EVENT DATE: 20160218
